FAERS Safety Report 5108294-4 (Version None)
Quarter: 2006Q3

REPORT INFORMATION
  Report Type: 
  Country: None (occurrence: None)
  Receive Date: 20060914
  Receipt Date: 20060914
  Transmission Date: 20061208
  Serious: Yes (Other)
  Sender: FDA-Public Use
  Company Number: None

PATIENT
  Sex: Female

DRUGS (1)
  1. FLUCINOLONE ACETONIDE OINTMENT USP 0.025% [Suspect]
     Indication: DRUG USE FOR UNKNOWN INDICATION
     Dates: start: 20060805

REACTIONS (2)
  - BLISTER [None]
  - PAIN [None]
